FAERS Safety Report 5430969-8 (Version None)
Quarter: 2007Q3

REPORT INFORMATION
  Report Type: 
  Country: None (occurrence: None)
  Receive Date: 20070830
  Receipt Date: 20070823
  Transmission Date: 20080115
  Serious: Yes (Hospitalization)
  Sender: FDA-Public Use
  Company Number: A0676069A

PATIENT
  Sex: Female

DRUGS (1)
  1. VALTREX [Suspect]
     Indication: GENITAL HERPES
     Dosage: 1G THREE TIMES PER DAY
     Route: 048

REACTIONS (3)
  - DRUG INEFFECTIVE [None]
  - HERPES SIMPLEX [None]
  - PATHOGEN RESISTANCE [None]
